FAERS Safety Report 20776976 (Version 11)
Quarter: 2024Q1

REPORT INFORMATION
  Report Type: Other
  Country: DE (occurrence: None)
  Receive Date: 20220502
  Receipt Date: 20240207
  Transmission Date: 20240410
  Serious: No
  Sender: FDA-Public Use
  Company Number: DE-ROCHE-3013986

PATIENT
  Age: 32 Year
  Sex: Female

DRUGS (21)
  1. OCRELIZUMAB [Suspect]
     Active Substance: OCRELIZUMAB
     Indication: Relapsing multiple sclerosis
     Route: 042
     Dates: start: 20220110
  2. OCRELIZUMAB [Suspect]
     Active Substance: OCRELIZUMAB
     Route: 042
     Dates: start: 20220711
  3. CYMBALTA [Concomitant]
     Active Substance: DULOXETINE HYDROCHLORIDE
     Indication: Depression
     Dosage: 30/60 MG?90 INCREASING MG
     Route: 048
     Dates: start: 202112
  4. CHOLECALCIFEROL [Concomitant]
     Active Substance: CHOLECALCIFEROL
     Indication: Vitamin D deficiency
     Route: 048
     Dates: start: 20190107
  5. COMIRNATY (TOZINAMERAN) [Concomitant]
     Active Substance: TOZINAMERAN
     Indication: Prophylaxis
     Dosage: DOSE: 30?DOSE FREQUENCY: OTHER
     Route: 030
     Dates: start: 20220110, end: 20220110
  6. NABIXIMOLS [Concomitant]
     Active Substance: NABIXIMOLS
     Route: 050
     Dates: start: 20220103
  7. INFLUENZA VIRUS VACCINE [Concomitant]
     Active Substance: INFLUENZA VIRUS VACCINE
     Route: 030
     Dates: start: 20220925, end: 20220925
  8. METHYLPREDNISOLUT [Concomitant]
     Route: 042
     Dates: start: 20231023, end: 20231025
  9. FERROUS GLYCINE SULFATE [Concomitant]
     Active Substance: FERROUS GLYCINE SULFATE
     Indication: Iron deficiency
     Dosage: DOSE: 100?DOSE FREQUENCY: BID (TWICE A DAY)
     Route: 048
     Dates: start: 202304, end: 20230714
  10. AMOXICILLIN\CLAVULANATE POTASSIUM [Concomitant]
     Active Substance: AMOXICILLIN\CLAVULANATE POTASSIUM
     Indication: Urinary tract infection
     Route: 048
     Dates: start: 202310
  11. PREDNISOLONE [Concomitant]
     Active Substance: PREDNISOLONE
     Indication: Premedication
     Dosage: V1 BASELINE
     Route: 042
     Dates: start: 20220110, end: 20220110
  12. PREDNISOLONE [Concomitant]
     Active Substance: PREDNISOLONE
     Dosage: V1 BASELINE - 2ND INFUSION
     Route: 042
     Dates: start: 20220124, end: 20220124
  13. PREDNISOLONE [Concomitant]
     Active Substance: PREDNISOLONE
     Dosage: V2 MONTH 6
     Route: 042
     Dates: start: 20220711, end: 20220711
  14. PREDNISOLONE [Concomitant]
     Active Substance: PREDNISOLONE
     Dosage: V3 MONTH 12
     Route: 042
     Dates: start: 20230116, end: 20230116
  15. PREDNISOLONE [Concomitant]
     Active Substance: PREDNISOLONE
     Route: 042
     Dates: start: 20240129, end: 20240129
  16. EBASTINE [Concomitant]
     Active Substance: EBASTINE
     Indication: Premedication
     Dosage: IN THE MORNING AND IN THE EVENING, FOR 3 DAYS.
     Route: 048
     Dates: start: 20220109, end: 20220111
  17. EBASTINE [Concomitant]
     Active Substance: EBASTINE
     Dosage: IN THE MORNING AND IN THE EVENING, FOR 3 DAYS.
     Route: 048
     Dates: start: 20220123, end: 20220125
  18. EBASTINE [Concomitant]
     Active Substance: EBASTINE
     Dosage: 2 TIMES A DAY FOR 3 DAYS, START 1 DAY BEFORE INFUSION
     Route: 048
     Dates: start: 20220710, end: 20220712
  19. EBASTINE [Concomitant]
     Active Substance: EBASTINE
     Dosage: 2 TIMES A DAY FOR 3 DAYS, START 1 DAY BEFORE INFUSION
     Route: 048
     Dates: start: 20230115, end: 20230116
  20. EBASTINE [Concomitant]
     Active Substance: EBASTINE
     Dosage: 2 TIMES A DAY FOR 3 DAYS, START 1 DAY BEFORE INFUSION
     Route: 048
     Dates: start: 20230723, end: 20230725
  21. EBASTINE [Concomitant]
     Active Substance: EBASTINE
     Dosage: 2 TIMES A DAY FOR 3 DAYS, START 1 DAY BEFORE INFUSION
     Route: 048
     Dates: start: 20240128, end: 20240130

REACTIONS (5)
  - COVID-19 [Recovered/Resolved]
  - Infusion related reaction [Recovered/Resolved]
  - Lymphocyte count decreased [Not Recovered/Not Resolved]
  - Herpes zoster [Recovered/Resolved]
  - C-reactive protein increased [Not Recovered/Not Resolved]

NARRATIVE: CASE EVENT DATE: 20220124
